FAERS Safety Report 9121354 (Version 2)
Quarter: 2013Q1

REPORT INFORMATION
  Report Type: Report from Study
  Country: GB (occurrence: GB)
  Receive Date: 20130225
  Receipt Date: 20130304
  Transmission Date: 20140127
  Serious: Yes (Hospitalization)
  Sender: FDA-Public Use
  Company Number: GB-ASTRAZENECA-2012SE88992

PATIENT
  Age: 25405 Day
  Sex: Male
  Weight: 67.2 kg

DRUGS (2)
  1. VANDETANIB [Suspect]
     Indication: ADENOCARCINOMA PANCREAS
     Route: 048
     Dates: start: 20111214
  2. GEMCITABINE [Suspect]
     Indication: ADENOCARCINOMA PANCREAS
     Dosage: WEEKLY,1,000 MG/M2 AS 30-MIN I.V. INFUSION FOR 3 CONSECUTIVE WEEKS, FOLLOWED BY 1-WEEK BREAK
     Route: 042
     Dates: start: 20111214

REACTIONS (2)
  - Gingival infection [Not Recovered/Not Resolved]
  - Pyrexia [Recovered/Resolved]
